FAERS Safety Report 13589024 (Version 2)
Quarter: 2017Q2

REPORT INFORMATION
  Report Type: Report from Study
  Country: AT (occurrence: AT)
  Receive Date: 20170529
  Receipt Date: 20170629
  Transmission Date: 20170830
  Serious: Yes (Hospitalization, Other)
  Sender: FDA-Public Use
  Company Number: AT-ROCHE-1915688

PATIENT
  Age: 77 Year
  Sex: Male
  Weight: 73.5 kg

DRUGS (6)
  1. NOMEXOR [Concomitant]
     Active Substance: NEBIVOLOL HYDROCHLORIDE
     Indication: HYPERTENSION
     Dosage: 5/12.5 MG
     Route: 048
     Dates: start: 20170329, end: 20170406
  2. EZETROL [Concomitant]
     Active Substance: EZETIMIBE
     Indication: HYPERCHOLESTEROLAEMIA
     Dosage: 1-0-0
     Route: 048
     Dates: start: 20170329, end: 20170406
  3. PANTOPRAZOL [Concomitant]
     Active Substance: PANTOPRAZOLE SODIUM
     Dosage: 1-0-0
     Route: 048
     Dates: start: 20170329, end: 20170406
  4. RAMIPRIL. [Concomitant]
     Active Substance: RAMIPRIL
     Indication: HYPERTENSION
     Dosage: 1-0-0 PAUSED
     Route: 048
  5. ATEZOLIZUMAB [Suspect]
     Active Substance: ATEZOLIZUMAB
     Indication: TRANSITIONAL CELL CARCINOMA
     Dosage: ONLY ADMINISTERED ONCE
     Route: 042
     Dates: start: 20170324, end: 20170324
  6. ELIQUIS [Concomitant]
     Active Substance: APIXABAN
     Indication: ATRIAL FIBRILLATION
     Dosage: 1-0-1
     Route: 048
     Dates: start: 20170329, end: 20170406

REACTIONS (6)
  - Metastases to peritoneum [Unknown]
  - Renal failure [Recovering/Resolving]
  - Leukocytosis [Unknown]
  - Hypophagia [Recovered/Resolved]
  - Transaminases increased [Recovering/Resolving]
  - Abdominal pain [Recovered/Resolved]

NARRATIVE: CASE EVENT DATE: 20170329
